FAERS Safety Report 14015677 (Version 1)
Quarter: 2017Q3

REPORT INFORMATION
  Report Type: Spontaneous
  Country: GB (occurrence: GB)
  Receive Date: 20170927
  Receipt Date: 20170927
  Transmission Date: 20171128
  Serious: Yes (Disabling, Other)
  Sender: FDA-Public Use
  Company Number: GB-SUN PHARMACEUTICAL INDUSTRIES LTD-2017RR-150676

PATIENT
  Age: 77 Year
  Sex: Male
  Weight: 113 kg

DRUGS (10)
  1. QUININE [Suspect]
     Active Substance: QUININE
     Dosage: 300 MG, QD
     Route: 048
     Dates: start: 20160502, end: 20170406
  2. ATORVASTATIN [Concomitant]
     Active Substance: ATORVASTATIN
     Indication: PRODUCT USED FOR UNKNOWN INDICATION
     Dosage: 30 MG, QD
     Route: 065
  3. QUININE [Suspect]
     Active Substance: QUININE
     Indication: MUSCLE SPASMS
     Dosage: 600 MG, QOD
     Route: 048
     Dates: start: 20170407
  4. IRON [Concomitant]
     Active Substance: IRON
     Indication: PERNICIOUS ANAEMIA
     Dosage: UNK
     Route: 065
  5. SERTRALINE [Suspect]
     Active Substance: SERTRALINE HYDROCHLORIDE
     Indication: PRODUCT USED FOR UNKNOWN INDICATION
     Dosage: 100 MG, QD
     Route: 065
  6. OMEPRAZOLE. [Concomitant]
     Active Substance: OMEPRAZOLE
     Indication: PRODUCT USED FOR UNKNOWN INDICATION
     Dosage: 20 MG, QD
     Route: 065
  7. ACETYLSALICYLIC ACID [Concomitant]
     Active Substance: ASPIRIN
     Indication: PRODUCT USED FOR UNKNOWN INDICATION
     Dosage: 75 MG, QD
     Route: 065
  8. CODEINE [Concomitant]
     Active Substance: CODEINE
     Indication: PRODUCT USED FOR UNKNOWN INDICATION
     Dosage: 30 MG, PRN
     Route: 065
  9. FERROUS FUMARATE [Concomitant]
     Active Substance: FERROUS FUMARATE
     Indication: PRODUCT USED FOR UNKNOWN INDICATION
     Dosage: 210 MG, BID
     Route: 065
  10. HUMULIN M3 [Concomitant]
     Active Substance: INSULIN HUMAN
     Indication: PRODUCT USED FOR UNKNOWN INDICATION
     Dosage: UNK
     Route: 065

REACTIONS (7)
  - Prescribed overdose [Unknown]
  - Agitated depression [Recovered/Resolved]
  - Off label use [Unknown]
  - Impaired quality of life [Unknown]
  - Tremor [Recovered/Resolved]
  - Fall [Unknown]
  - Back injury [Unknown]
